FAERS Safety Report 23958574 (Version 1)
Quarter: 2024Q2

REPORT INFORMATION
  Report Type: Spontaneous
  Country: US (occurrence: US)
  Receive Date: 20240610
  Receipt Date: 20240610
  Transmission Date: 20240716
  Serious: No
  Sender: FDA-Public Use
  Company Number: US-ANIPHARMA-2024-US-023260

PATIENT
  Age: 87 Year
  Sex: Male
  Weight: 86.18 kg

DRUGS (1)
  1. COLESTIPOL HYDROCHLORIDE [Suspect]
     Active Substance: COLESTIPOL HYDROCHLORIDE
     Indication: Blood cholesterol increased
     Dosage: 1 TABLET
     Route: 048
     Dates: start: 20240405

REACTIONS (3)
  - Product use complaint [Unknown]
  - Choking [Recovered/Resolved]
  - Throat irritation [Unknown]

NARRATIVE: CASE EVENT DATE: 20240405
